FAERS Safety Report 6255337-0 (Version None)
Quarter: 2009Q3

REPORT INFORMATION
  Report Type: 
  Country: None (occurrence: None)
  Receive Date: 20090702
  Receipt Date: 20090622
  Transmission Date: 20100115
  Serious: Yes (Death, Other)
  Sender: FDA-Public Use
  Company Number: US-TYCO HEALTHCARE/MALLINCKRODT-T200901278

PATIENT
  Sex: Male

DRUGS (18)
  1. OPTIMARK [Suspect]
     Indication: NUCLEAR MAGNETIC RESONANCE IMAGING
     Dosage: 18 ML, SINGLE
     Route: 042
     Dates: start: 20040708, end: 20040708
  2. OMNISCAN [Suspect]
     Indication: NUCLEAR MAGNETIC RESONANCE IMAGING
     Dosage: UNK
     Dates: start: 20040920, end: 20040920
  3. OMNISCAN [Suspect]
     Dosage: UNK
     Dates: start: 20050121, end: 20050121
  4. ALLOPURINOL [Concomitant]
     Dosage: 300 MG, QD
  5. SYNTHROID [Concomitant]
     Dosage: 125 UG, QD
  6. LYRICA [Concomitant]
     Dosage: 75 MG, BID
  7. LORTAB [Concomitant]
     Indication: PAIN
     Dosage: 7.5 MG, BID, PRN
  8. ZAROXOLYN [Concomitant]
     Dosage: 2.5 MG, EVERY OTHER DAY
  9. COREG [Concomitant]
     Dosage: 25 MG, BID
  10. PREDNISONE [Concomitant]
     Dosage: 30 MG, QD ON TAPERING SCHEDULE
  11. COUMADIN [Concomitant]
     Dosage: 2 MG,Q HS
  12. DIGOXIN [Concomitant]
     Dosage: 0.125 MG, EVERY OTHER DAY
  13. LASIX [Concomitant]
     Dosage: 40 MG, BID
  14. NPH INSULIN [Concomitant]
     Dosage: 28 UNITS, IN AM, 12 UNITS, IN PM
     Route: 058
  15. INSULIN [Concomitant]
     Dosage: 12 UNITS, IN AM, 12 UNITS IN PM
     Route: 058
  16. PRAVACHOL [Concomitant]
     Dosage: 20 MG, QD
  17. PHOSLO [Concomitant]
     Dosage: 667 MG,2 TABLETS, TID
  18. XANAX [Concomitant]
     Dosage: 0.5 MG, PRN

REACTIONS (3)
  - DEATH [None]
  - NEPHROGENIC SYSTEMIC FIBROSIS [None]
  - OFF LABEL USE [None]
